FAERS Safety Report 15691100 (Version 2)
Quarter: 2018Q4

REPORT INFORMATION
  Report Type: Spontaneous
  Country: CA (occurrence: CA)
  Receive Date: 20181205
  Receipt Date: 20181206
  Transmission Date: 20190205
  Serious: Yes (Other)
  Sender: FDA-Public Use
  Company Number: CA-SA-2017SA170139

PATIENT
  Age: 70 Year
  Sex: Female

DRUGS (29)
  1. ATORVASTATIN [Suspect]
     Active Substance: ATORVASTATIN
     Indication: PRODUCT USED FOR UNKNOWN INDICATION
     Dosage: UNK UNK,UNK
     Route: 065
  2. GLICLAZIDE [Suspect]
     Active Substance: GLICLAZIDE
     Dosage: UNK UNK,UNK
     Route: 065
  3. ZANTAC [Suspect]
     Active Substance: RANITIDINE HYDROCHLORIDE
     Indication: PRODUCT USED FOR UNKNOWN INDICATION
     Dosage: UNK UNK,UNK
     Route: 065
  4. ESOMEPRAZOLE. [Concomitant]
     Active Substance: ESOMEPRAZOLE MAGNESIUM
     Indication: PRODUCT USED FOR UNKNOWN INDICATION
     Dosage: 20 MG, QD
     Route: 048
  5. CODEINE [Suspect]
     Active Substance: CODEINE
     Dosage: UNK UNK,UNK
     Route: 065
  6. EZETIMIBE. [Suspect]
     Active Substance: EZETIMIBE
     Dosage: UNK UNK,UNK
     Route: 065
  7. FENOFIBRATE. [Concomitant]
     Active Substance: FENOFIBRATE
     Indication: PRODUCT USED FOR UNKNOWN INDICATION
     Dosage: 160 MG, QD
     Route: 048
  8. ALTACE [Suspect]
     Active Substance: RAMIPRIL
     Indication: PRODUCT USED FOR UNKNOWN INDICATION
     Dosage: UNK UNK,UNK
     Route: 048
  9. GLIBENCLAMIDE [Suspect]
     Active Substance: GLYBURIDE
     Indication: TYPE 2 DIABETES MELLITUS
     Dosage: UNK UNK,UNK
     Route: 065
  10. TOPIRAMATE. [Suspect]
     Active Substance: TOPIRAMATE
     Indication: PRODUCT USED FOR UNKNOWN INDICATION
     Dosage: UNK UNK,UNK
     Route: 065
  11. NAPROXEN. [Suspect]
     Active Substance: NAPROXEN
     Indication: PRODUCT USED FOR UNKNOWN INDICATION
     Dosage: UNK UNK,UNK
     Route: 065
  12. PRILOCAINE [Suspect]
     Active Substance: PRILOCAINE
     Indication: PRODUCT USED FOR UNKNOWN INDICATION
     Dosage: UNK UNK,UNK
     Route: 065
  13. GATIFLOXACIN. [Suspect]
     Active Substance: GATIFLOXACIN
     Indication: PRODUCT USED FOR UNKNOWN INDICATION
     Dosage: UNK UNK,UNK
     Route: 065
  14. INSULIN [Concomitant]
     Active Substance: INSULIN NOS
     Indication: PRODUCT USED FOR UNKNOWN INDICATION
     Dosage: UNK UNK,UNK
     Route: 048
  15. CELECOXIB. [Suspect]
     Active Substance: CELECOXIB
     Dosage: UNK UNK,UNK
     Route: 065
  16. MOXIFLOXACIN HYDROCHLORIDE. [Suspect]
     Active Substance: MOXIFLOXACIN HYDROCHLORIDE
     Indication: PRODUCT USED FOR UNKNOWN INDICATION
     Dosage: UNK UNK,UNK
     Route: 065
  17. PHENETICILLIN POTASSIUM [Suspect]
     Active Substance: PHENETHICILLIN POTASSIUM
     Indication: PRODUCT USED FOR UNKNOWN INDICATION
     Dosage: UNK UNK,UNK
     Route: 065
  18. METFORMIN HYDROCHLORIDE. [Suspect]
     Active Substance: METFORMIN HYDROCHLORIDE
     Indication: TYPE 2 DIABETES MELLITUS
     Dosage: UNK UNK,UNK
     Route: 048
  19. RAMIPRIL. [Suspect]
     Active Substance: RAMIPRIL
     Dosage: UNK UNK,UNK
     Route: 065
  20. GABAPENTIN. [Suspect]
     Active Substance: GABAPENTIN
     Dosage: UNK UNK,UNK
     Route: 065
  21. GEMCITABINE [Concomitant]
     Active Substance: GEMCITABINE\GEMCITABINE HYDROCHLORIDE
     Indication: ADENOCARCINOMA PANCREAS
  22. INSULIN GLARGINE [Concomitant]
     Active Substance: INSULIN GLARGINE
     Indication: PRODUCT USED FOR UNKNOWN INDICATION
     Route: 058
  23. HYDROMORPHONE HYDROCHLORIDE. [Concomitant]
     Active Substance: HYDROMORPHONE HYDROCHLORIDE
     Indication: PRODUCT USED FOR UNKNOWN INDICATION
     Dosage: 3 MG, BID
     Route: 048
  24. HYDROMORPHONE HYDROCHLORIDE. [Concomitant]
     Active Substance: HYDROMORPHONE HYDROCHLORIDE
     Dosage: 24 MG, QD
     Route: 048
  25. MORPHINE SULFATE. [Suspect]
     Active Substance: MORPHINE SULFATE
     Indication: PAIN
     Dosage: 25 MG,QD
     Route: 065
  26. PENICILLIN G ^HOECHST^ [Suspect]
     Active Substance: PENICILLIN G SODIUM
     Indication: PRODUCT USED FOR UNKNOWN INDICATION
     Dosage: UNK UNK,UNK
     Route: 065
  27. MELOXICAM. [Suspect]
     Active Substance: MELOXICAM
     Dosage: UNK UNK,UNK
     Route: 065
  28. VIOXX [Suspect]
     Active Substance: ROFECOXIB
     Indication: PRODUCT USED FOR UNKNOWN INDICATION
     Dosage: UNK UNK,UNK
     Route: 065
  29. IRBESARTAN. [Concomitant]
     Active Substance: IRBESARTAN
     Indication: PRODUCT USED FOR UNKNOWN INDICATION
     Dosage: UNK UNK,UNK
     Route: 048

REACTIONS (2)
  - Anaphylactic reaction [Unknown]
  - Drug intolerance [Unknown]
